FAERS Safety Report 8340546-7 (Version None)
Quarter: 2012Q2

REPORT INFORMATION
  Report Type: 
  Country: None (occurrence: None)
  Receive Date: 20120507
  Receipt Date: 20120504
  Transmission Date: 20120825
  Serious: Yes (Other)
  Sender: FDA-Public Use
  Company Number: FR-ROCHE-1065983

PATIENT
  Sex: Female

DRUGS (2)
  1. SINTROM [Suspect]
     Indication: ATRIAL FIBRILLATION
     Route: 048
     Dates: end: 20120103
  2. ROCEPHIN [Suspect]
     Indication: LUNG DISORDER
     Dosage: 1G / 10 ML
     Route: 042
     Dates: start: 20111231, end: 20120117

REACTIONS (1)
  - INTERNATIONAL NORMALISED RATIO INCREASED [None]
